FAERS Safety Report 15785424 (Version 2)
Quarter: 2019Q1

REPORT INFORMATION
  Report Type: Spontaneous
  Country: SK (occurrence: SK)
  Receive Date: 20190103
  Receipt Date: 20190116
  Transmission Date: 20190417
  Serious: Yes (Other)
  Sender: FDA-Public Use
  Company Number: SK-TEVA-2019-SK-994736

PATIENT
  Age: 53 Year
  Sex: Female

DRUGS (4)
  1. GEMCITABINE [Suspect]
     Active Substance: GEMCITABINE\GEMCITABINE HYDROCHLORIDE
     Indication: PANCREATIC CARCINOMA
     Dosage: 1 CYCLE INCLUDED ADMINISTRATION ON DAY 1, 8, 15
     Route: 042
     Dates: start: 201703, end: 201706
  2. GEMCITABINE [Suspect]
     Active Substance: GEMCITABINE\GEMCITABINE HYDROCHLORIDE
     Dosage: 1 CYCLE INCLUDED ADMINISTRATION ON DAY 1, 8, 15
     Route: 042
     Dates: start: 201703, end: 201706
  3. CISPLATIN. [Suspect]
     Active Substance: CISPLATIN
     Dosage: 1 CYCLE INCLUDED ADMINISTRATION ON DAY 1, 15
     Route: 042
     Dates: start: 201703, end: 201706
  4. CISPLATIN. [Suspect]
     Active Substance: CISPLATIN
     Indication: PANCREATIC CARCINOMA
     Dosage: 1 CYCLE INCLUDED ADMINISTRATION ON DAY 1, 15
     Route: 042
     Dates: start: 201703, end: 201706

REACTIONS (8)
  - Decreased appetite [Unknown]
  - Thrombocytopenia [Unknown]
  - Anaemia [Unknown]
  - Abdominal pain [Unknown]
  - Pancreatic carcinoma metastatic [Unknown]
  - Haematotoxicity [Unknown]
  - Nausea [Unknown]
  - Gastrointestinal toxicity [Unknown]

NARRATIVE: CASE EVENT DATE: 2017
